FAERS Safety Report 21338001 (Version 1)
Quarter: 2022Q3

REPORT INFORMATION
  Report Type: Spontaneous
  Country: JP (occurrence: JP)
  Receive Date: 20220915
  Receipt Date: 20220915
  Transmission Date: 20221027
  Serious: Yes (Death, Other)
  Sender: FDA-Public Use
  Company Number: JP-CELGENE-JPN-20191009214

PATIENT
  Age: 75 Year
  Sex: Female

DRUGS (3)
  1. REVLIMID [Suspect]
     Active Substance: LENALIDOMIDE
     Indication: Plasma cell myeloma
     Dosage: FREQUENCY TEXT: UNKNOWN
     Route: 048
     Dates: start: 20180530, end: 20180619
  2. REVLIMID [Suspect]
     Active Substance: LENALIDOMIDE
     Route: 048
     Dates: start: 20180627, end: 20180717
  3. LENADEX [Suspect]
     Active Substance: DEXAMETHASONE ACETATE
     Indication: Plasma cell myeloma
     Dosage: FREQUENCY TEXT: UNKNOWN?UNKNOWN
     Route: 048

REACTIONS (2)
  - Pneumonia [Fatal]
  - Renal disorder [Unknown]

NARRATIVE: CASE EVENT DATE: 20180627
